FAERS Safety Report 7586723-4 (Version None)
Quarter: 2011Q3

REPORT INFORMATION
  Report Type: 
  Country: None (occurrence: None)
  Receive Date: 20110701
  Receipt Date: 20110624
  Transmission Date: 20111222
  Serious: Yes (Death, Hospitalization)
  Sender: FDA-Public Use
  Company Number: US-MERCK-1106USA02224

PATIENT
  Age: 83 Year
  Sex: Female

DRUGS (9)
  1. LISINOPRIL [Concomitant]
     Route: 048
  2. LORTAB [Concomitant]
     Route: 065
  3. ATIVAN [Concomitant]
     Route: 065
  4. HALDOL [Concomitant]
     Route: 065
  5. DOCUSATE SODIUM [Concomitant]
     Route: 065
  6. REGLAN [Concomitant]
     Route: 065
  7. FOSAMAX [Suspect]
     Indication: OSTEOPOROSIS
     Route: 048
  8. OMEPRAZOLE [Concomitant]
     Route: 065
  9. ROXANOL [Concomitant]
     Route: 065

REACTIONS (2)
  - BILIARY TRACT DISORDER [None]
  - PANCREATIC CARCINOMA [None]
